FAERS Safety Report 7596931-4 (Version None)
Quarter: 2011Q3

REPORT INFORMATION
  Report Type: 
  Country: None (occurrence: None)
  Receive Date: 20110708
  Receipt Date: 20110704
  Transmission Date: 20111222
  Serious: Yes (Other)
  Sender: FDA-Public Use
  Company Number: CA-ABBOTT-11P-028-0734332-00

PATIENT
  Sex: Female
  Weight: 62.652 kg

DRUGS (5)
  1. METHOTREXATE [Concomitant]
     Indication: RHEUMATOID ARTHRITIS
     Route: 048
     Dates: start: 19990101
  2. PREDNISONE [Concomitant]
     Indication: RHEUMATOID ARTHRITIS
     Route: 048
     Dates: start: 19970101
  3. ACTONEL [Concomitant]
     Indication: OSTEOARTHRITIS
     Route: 048
     Dates: start: 20030101
  4. HUMIRA [Suspect]
     Indication: RHEUMATOID ARTHRITIS
     Route: 058
  5. CELEBREX [Concomitant]
     Indication: PAIN
     Dosage: DAILY AS NEEDED
     Route: 048
     Dates: start: 19980101

REACTIONS (3)
  - HYPERTENSION [None]
  - OSTEOARTHRITIS [None]
  - MUSCLE SPASMS [None]
